FAERS Safety Report 14704811 (Version 1)
Quarter: 2018Q2

REPORT INFORMATION
  Report Type: Spontaneous
  Country: US (occurrence: US)
  Receive Date: 20180402
  Receipt Date: 20180402
  Transmission Date: 20180711
  Serious: Yes (Death, Hospitalization)
  Sender: FDA-Public Use
  Company Number: US-LPDUSPRD-20180426

PATIENT
  Age: 71 Year
  Sex: Male

DRUGS (4)
  1. ECULIZUMAB [Suspect]
     Active Substance: ECULIZUMAB
     Dosage: UNKNOWN
     Route: 065
     Dates: start: 201407
  2. STEROIDS [Suspect]
     Active Substance: UNSPECIFIED INGREDIENT
     Dosage: UNKNOWN
     Route: 065
     Dates: start: 201403
  3. CYCLOSPORINE INJECTION, USP (866-10) [Suspect]
     Active Substance: CYCLOSPORINE
     Dosage: UNKNOWN
     Route: 065
     Dates: start: 201403
  4. ANTI-THYMOCYTE GLOBULIN [Concomitant]
     Active Substance: THYMOCYTE IMMUNE GLOBULIN NOS
     Dosage: 40 MG/KG DAILY
     Route: 065
     Dates: start: 201403, end: 2014

REACTIONS (1)
  - Acute myeloid leukaemia [Unknown]
